FAERS Safety Report 14940088 (Version 1)
Quarter: 2018Q2

REPORT INFORMATION
  Report Type: Report from Study
  Country: US (occurrence: US)
  Receive Date: 20180525
  Receipt Date: 20180525
  Transmission Date: 20180711
  Serious: Yes (Other)
  Sender: FDA-Public Use
  Company Number: US-PFIZER INC-2018100593

PATIENT
  Age: 50 Year
  Sex: Female

DRUGS (2)
  1. IBRANCE [Suspect]
     Active Substance: PALBOCICLIB
     Indication: BREAST CANCER FEMALE
     Dosage: 125 MG, CYCLIC (DAILY, 21 DAYS ON/14 DAYS OFF )
     Route: 048
     Dates: start: 20180228
  2. IBRANCE [Suspect]
     Active Substance: PALBOCICLIB
     Dosage: 125 MG, DAILY
     Route: 048
     Dates: start: 20180326

REACTIONS (13)
  - Rhinorrhoea [Unknown]
  - Frequent bowel movements [Recovered/Resolved]
  - Oral pain [Unknown]
  - Influenza like illness [Unknown]
  - Pain [Unknown]
  - Nausea [Recovered/Resolved]
  - Eructation [Unknown]
  - White blood cell count decreased [Unknown]
  - Chills [Unknown]
  - Paraesthesia [Unknown]
  - Constipation [Unknown]
  - Neuropathy peripheral [Unknown]
  - Pyrexia [Unknown]

NARRATIVE: CASE EVENT DATE: 2018
